FAERS Safety Report 8396752-9 (Version None)
Quarter: 2012Q2

REPORT INFORMATION
  Report Type: 
  Country: None (occurrence: None)
  Receive Date: 20120530
  Receipt Date: 20120515
  Transmission Date: 20120825
  Serious: No
  Sender: FDA-Public Use
  Company Number: US-ASTRAZENECA-2012SE31032

PATIENT
  Sex: Female

DRUGS (1)
  1. SYMBICORT [Suspect]
     Dosage: 16, UNKNOWN
     Route: 055
     Dates: start: 20100101

REACTIONS (2)
  - OSTEOPOROSIS [None]
  - BLOOD PRESSURE INCREASED [None]
